FAERS Safety Report 9806310 (Version 3)
Quarter: 2014Q1

REPORT INFORMATION
  Report Type: Report from Study
  Country: US (occurrence: US)
  Receive Date: 20140109
  Receipt Date: 20140205
  Transmission Date: 20141002
  Serious: Yes (Hospitalization)
  Sender: FDA-Public Use
  Company Number: US-CELGENEUS-163-22393-13125154

PATIENT
  Age: 69 Year
  Sex: Female

DRUGS (50)
  1. ISTODAX [Suspect]
     Indication: T-CELL LYMPHOMA
     Route: 041
     Dates: start: 20131125
  2. ISTODAX [Suspect]
     Route: 041
     Dates: start: 20131218, end: 20131230
  3. IFOSFAMIDE [Suspect]
     Indication: T-CELL LYMPHOMA
     Dosage: 5 MILLIGRAM/SQ. METER
     Route: 041
     Dates: start: 20131125
  4. IFOSFAMIDE [Suspect]
     Route: 041
     Dates: start: 20131218, end: 20131230
  5. CARBOPLATIN [Suspect]
     Indication: T-CELL LYMPHOMA
     Route: 041
     Dates: start: 20131125
  6. CARBOPLATIN [Suspect]
     Route: 041
     Dates: start: 20131218, end: 20131230
  7. ETOPOSIDE [Suspect]
     Indication: T-CELL LYMPHOMA
     Dosage: 100 MILLIGRAM/SQ. METER
     Route: 041
     Dates: start: 20131125
  8. ETOPOSIDE [Suspect]
     Dosage: 100 MILLIGRAM/SQ. METER
     Route: 041
     Dates: start: 20131218, end: 20131230
  9. NIFEDIPINE [Concomitant]
     Indication: PRODUCT USED FOR UNKNOWN INDICATION
     Route: 048
  10. SODIUM BICARBONATE [Concomitant]
     Indication: PRODUCT USED FOR UNKNOWN INDICATION
     Dosage: 5200 MILLIGRAM
     Route: 048
  11. ELECTROLYTE-A [Concomitant]
     Indication: PRODUCT USED FOR UNKNOWN INDICATION
     Dosage: 1000 MILLILITER
     Route: 041
  12. MEROPENEM [Concomitant]
     Indication: PRODUCT USED FOR UNKNOWN INDICATION
     Dosage: 1000 MILLIGRAM
     Route: 048
  13. SODIUM CITRATE + CITRIC ACID [Concomitant]
     Indication: PRODUCT USED FOR UNKNOWN INDICATION
     Dosage: 60 MILLILITER
     Route: 048
  14. LEVETIRACETAM [Concomitant]
     Indication: CONVULSION
     Dosage: 1000 MILLIGRAM
     Route: 048
  15. VALACYCLOVIR HCL [Concomitant]
     Indication: PRODUCT USED FOR UNKNOWN INDICATION
     Dosage: 500 MILLIGRAM
     Route: 048
  16. METRONIDAZOLE [Concomitant]
     Indication: PRODUCT USED FOR UNKNOWN INDICATION
     Dosage: 1500 MILLIGRAM
     Route: 048
  17. LOPERAMIDE [Concomitant]
     Indication: PRODUCT USED FOR UNKNOWN INDICATION
     Route: 048
  18. NYSTATIN [Concomitant]
     Indication: PRODUCT USED FOR UNKNOWN INDICATION
     Dosage: 500,000 UNIT(S)
  19. MULTIPLE VITAMIN [Concomitant]
     Indication: PRODUCT USED FOR UNKNOWN INDICATION
     Dosage: 1 TABLET
     Route: 048
  20. SODIUM CHLORIDE [Concomitant]
     Indication: PRODUCT USED FOR UNKNOWN INDICATION
     Dosage: 20 MILLILITER
  21. SODIUM CHLORIDE [Concomitant]
     Route: 045
  22. SODIUM CHLORIDE [Concomitant]
     Route: 041
  23. SODIUM CHLORIDE [Concomitant]
  24. DIPHENOXYLATE WTIH ATROPINE [Concomitant]
     Indication: DIARRHOEA
     Route: 048
  25. DIPHENOXYLATE WTIH ATROPINE [Concomitant]
     Indication: DIARRHOEA
  26. HYDRALAZINE [Concomitant]
     Indication: BLOOD PRESSURE
  27. LORAZEPAM [Concomitant]
     Indication: PRODUCT USED FOR UNKNOWN INDICATION
  28. ONDANSETRON HCL [Concomitant]
     Indication: NAUSEA
     Dosage: 16 MILLIGRAM
  29. ONDANSETRON HCL [Concomitant]
     Indication: VOMITING
  30. HYDROCORTISONE SOD SUCC [Concomitant]
     Indication: PRODUCT USED FOR UNKNOWN INDICATION
  31. XYLOXYLIN [Concomitant]
     Indication: PRODUCT USED FOR UNKNOWN INDICATION
  32. PRAMOXINE-PHENYLEPHRINE-GLYCERIN-PETROLEUM [Concomitant]
     Indication: PRODUCT USED FOR UNKNOWN INDICATION
     Dosage: 78 GRAM
  33. WHITE PETROLEUM [Concomitant]
     Indication: PRODUCT USED FOR UNKNOWN INDICATION
     Route: 065
  34. SKIN PROTECTANTS, MISC [Concomitant]
     Indication: PRODUCT USED FOR UNKNOWN INDICATION
  35. SIMITHICONE [Concomitant]
     Indication: PRODUCT USED FOR UNKNOWN INDICATION
     Route: 048
  36. DOCUSATE SODIUM\SENNOSIDES [Concomitant]
     Indication: CONSTIPATION
     Dosage: 2 TABLET
     Route: 048
  37. OXYCODONE [Concomitant]
     Indication: PRODUCT USED FOR UNKNOWN INDICATION
     Route: 048
  38. ZOLPIDEM TARTRATE [Concomitant]
     Indication: PRODUCT USED FOR UNKNOWN INDICATION
     Dosage: 5 MILLIGRAM
     Route: 048
  39. VALCYTE [Concomitant]
     Indication: PRODUCT USED FOR UNKNOWN INDICATION
     Route: 065
  40. VANTIN [Concomitant]
     Indication: PRODUCT USED FOR UNKNOWN INDICATION
     Route: 065
  41. PEGFILGRASTIM [Concomitant]
     Indication: PRODUCT USED FOR UNKNOWN INDICATION
     Route: 065
  42. DECLOPRAMIDE [Concomitant]
     Indication: PRODUCT USED FOR UNKNOWN INDICATION
     Route: 065
  43. ASA [Concomitant]
     Indication: HEADACHE
     Dosage: 162 MILLIGRAM
     Route: 048
  44. ASA [Concomitant]
     Indication: PRODUCT USED FOR UNKNOWN INDICATION
  45. POLYETHYLENE GLYCOL [Concomitant]
     Indication: CONSTIPATION
     Dosage: 17 GRAM
     Route: 048
  46. METOPROLOL TARTRATE [Concomitant]
     Indication: PRODUCT USED FOR UNKNOWN INDICATION
     Dosage: 150 MILLIGRAM
     Route: 048
  47. METOPROLOL TARTRATE [Concomitant]
     Indication: TACHYCARDIA
     Dosage: 30 MILLIGRAM
     Route: 041
  48. CLONIDINE [Concomitant]
     Indication: BLOOD PRESSURE
     Dosage: 1 PATCH
     Route: 062
  49. CIPROFLOXACIN [Concomitant]
     Indication: INFECTION
     Dosage: 400 MILLIGRAM
     Route: 041
  50. XOPENEX [Concomitant]
     Indication: DYSPNOEA
     Route: 055

REACTIONS (3)
  - Renal failure acute [Recovered/Resolved]
  - Thrombocytopenia [Recovered/Resolved]
  - Neutropenia [Recovered/Resolved]
